FAERS Safety Report 5133920-3 (Version None)
Quarter: 2006Q4

REPORT INFORMATION
  Report Type: 
  Country: None (occurrence: None)
  Receive Date: 20061019
  Receipt Date: 20061009
  Transmission Date: 20070319
  Serious: Yes (Other)
  Sender: FDA-Public Use
  Company Number: 2006123932

PATIENT
  Age: 74 Year
  Sex: Female
  Weight: 79.6 kg

DRUGS (8)
  1. SPIRONOLACTONE [Suspect]
     Indication: RIGHT VENTRICULAR FAILURE
     Dosage: 25 MG, ORAL
     Route: 048
     Dates: start: 20051201, end: 20060601
  2. TELMISARTAN (TELMISARTAN) [Suspect]
     Indication: HYPERTENSION
     Dosage: 80 MG, ORAL
     Route: 048
     Dates: start: 20051201, end: 20060601
  3. ALLOPURINOL [Concomitant]
  4. BISOPROLOL FUMARATE [Concomitant]
  5. ROSIGLITAZONE [Concomitant]
  6. SIMVASTATIN [Concomitant]
  7. TOLBUTAMIDE [Concomitant]
  8. WARFARIN SODIUM [Concomitant]

REACTIONS (2)
  - ANAEMIA [None]
  - NEUTROPENIA [None]
